FAERS Safety Report 6538227-5 (Version None)
Quarter: 2010Q1

REPORT INFORMATION
  Report Type: 
  Country: None (occurrence: None)
  Receive Date: 20100114
  Receipt Date: 20100104
  Transmission Date: 20100710
  Serious: Yes (Other)
  Sender: FDA-Public Use
  Company Number: GB-BAXTER-2007BH008742

PATIENT
  Age: 38 Year
  Sex: Male

DRUGS (3)
  1. CYCLOPHOSPHAMIDE [Suspect]
     Indication: CHEMOTHERAPY
     Route: 042
  2. FLUDARA [Suspect]
     Indication: CHEMOTHERAPY
     Route: 042
  3. LENOGRASTIM [Concomitant]
     Indication: PROPHYLAXIS
     Route: 058

REACTIONS (3)
  - LYMPHOPENIA [None]
  - NEUTROPENIA [None]
  - THROMBOCYTOPENIA [None]
